FAERS Safety Report 9994124 (Version 1)
Quarter: 2014Q1

REPORT INFORMATION
  Report Type: Spontaneous
  Country: FR (occurrence: FR)
  Receive Date: 20140310
  Receipt Date: 20140310
  Transmission Date: 20141002
  Serious: Yes (Death, Other)
  Sender: FDA-Public Use
  Company Number: FR-CELGENEUS-056-50794-14024626

PATIENT
  Sex: Male
  Weight: 82 kg

DRUGS (1)
  1. VIDAZA [Suspect]
     Indication: MYELODYSPLASTIC SYNDROME
     Route: 058
     Dates: start: 20120123, end: 201206

REACTIONS (6)
  - Blood disorder [Fatal]
  - Full blood count decreased [Unknown]
  - Asthenia [Unknown]
  - Infection [Unknown]
  - Myelodysplastic syndrome [Unknown]
  - Treatment failure [Unknown]
